FAERS Safety Report 6276818-X (Version None)
Quarter: 2009Q3

REPORT INFORMATION
  Report Type: 
  Country: None (occurrence: None)
  Receive Date: 20090722
  Receipt Date: 20080905
  Transmission Date: 20100115
  Serious: No
  Sender: FDA-Public Use
  Company Number: US-BRISTOL-MYERS SQUIBB COMPANY-14326847

PATIENT
  Age: 75 Year
  Sex: Male
  Weight: 107 kg

DRUGS (5)
  1. COUMADIN [Suspect]
  2. PROSCAR [Concomitant]
  3. ASPIRIN [Concomitant]
  4. GLUCOPHAGE [Concomitant]
  5. GLUCOTROL [Concomitant]

REACTIONS (3)
  - CONTUSION [None]
  - HAEMORRHAGE [None]
  - RASH MACULAR [None]
